FAERS Safety Report 8220879-5 (Version None)
Quarter: 2012Q1

REPORT INFORMATION
  Report Type: 
  Country: None (occurrence: None)
  Receive Date: 20120320
  Receipt Date: 20120309
  Transmission Date: 20120608
  Serious: Yes (Hospitalization)
  Sender: FDA-Public Use
  Company Number: GB-SANOFI-AVENTIS-2012SA009544

PATIENT
  Age: 68 Year
  Sex: Female

DRUGS (5)
  1. RIFAMPICIN [Suspect]
     Route: 048
     Dates: start: 20120127, end: 20120129
  2. ETHAMBUTOL HYDROCHLORIDE [Suspect]
     Route: 048
     Dates: start: 20120127, end: 20120129
  3. ANTINEOPLASTIC AGENTS [Suspect]
     Route: 048
     Dates: start: 20111130
  4. ANTINEOPLASTIC AGENTS [Suspect]
     Route: 048
     Dates: end: 20120203
  5. ANTINEOPLASTIC AGENTS [Suspect]
     Route: 048
     Dates: start: 20120216

REACTIONS (4)
  - COORDINATION ABNORMAL [None]
  - MUSCULAR WEAKNESS [None]
  - CONFUSIONAL STATE [None]
  - DYSPNOEA [None]
